FAERS Safety Report 17305016 (Version 1)
Quarter: 2020Q1

REPORT INFORMATION
  Report Type: Spontaneous
  Country: US (occurrence: US)
  Receive Date: 20200123
  Receipt Date: 20200123
  Transmission Date: 20200409
  Serious: No
  Sender: FDA-Public Use
  Company Number: US-PFIZER INC-2019368971

PATIENT
  Age: 39 Year
  Sex: Female

DRUGS (1)
  1. ZARONTIN [Suspect]
     Active Substance: ETHOSUXIMIDE
     Dosage: 500 MG, 2X/DAY (TAKE 2 CAPSULES (500 MG TOTAL) BY MOUTH TWICE DAILY)
     Route: 048

REACTIONS (2)
  - Nasal congestion [Unknown]
  - Malaise [Unknown]
